FAERS Safety Report 17847490 (Version 1)
Quarter: 2020Q2

REPORT INFORMATION
  Report Type: Spontaneous
  Country: IT (occurrence: IT)
  Receive Date: 20200601
  Receipt Date: 20200601
  Transmission Date: 20200714
  Serious: Yes (Life-Threatening)
  Sender: FDA-Public Use
  Company Number: IT-CELGENEUS-ITA-20200509037

PATIENT
  Age: 74 Year
  Sex: Male
  Weight: 85 kg

DRUGS (1)
  1. REVLIMID [Suspect]
     Active Substance: LENALIDOMIDE
     Indication: DIFFUSE LARGE B-CELL LYMPHOMA
     Route: 048
     Dates: start: 20200421, end: 20200504

REACTIONS (2)
  - Bundle branch block right [Recovered/Resolved with Sequelae]
  - Bundle branch block left [Recovered/Resolved with Sequelae]

NARRATIVE: CASE EVENT DATE: 20200509
